FAERS Safety Report 5100152-4 (Version None)
Quarter: 2006Q3

REPORT INFORMATION
  Report Type: 
  Country: None (occurrence: None)
  Receive Date: 20060908
  Receipt Date: 20060829
  Transmission Date: 20061208
  Serious: Yes (Hospitalization)
  Sender: FDA-Public Use
  Company Number: FR-ABBOTT-06P-056-0342557-00

PATIENT
  Age: 38 Year
  Sex: Female
  Weight: 50 kg

DRUGS (3)
  1. MONOZECLAR [Suspect]
     Indication: BRONCHOPNEUMONIA
     Route: 048
     Dates: start: 20051226, end: 20060106
  2. PREDNISOLONE [Suspect]
     Indication: BRONCHOPNEUMONIA
     Route: 048
     Dates: start: 20051226, end: 20060106
  3. AMBROXOL [Suspect]
     Indication: BRONCHOPNEUMONIA
     Route: 048
     Dates: start: 20051226, end: 20060106

REACTIONS (4)
  - ECZEMA [None]
  - FOLLICULITIS [None]
  - LYMPHADENOPATHY [None]
  - TOXIC SKIN ERUPTION [None]
